FAERS Safety Report 9402464 (Version 1)
Quarter: 2013Q3

REPORT INFORMATION
  Report Type: Spontaneous
  Country: US (occurrence: US)
  Receive Date: 20130716
  Receipt Date: 20130716
  Transmission Date: 20140515
  Serious: Yes (Other)
  Sender: FDA-Public Use
  Company Number: US-PFIZER INC-2013204321

PATIENT
  Sex: Female

DRUGS (2)
  1. GLIPIZIDE [Suspect]
     Dosage: UNK
  2. GLUCOTROL [Suspect]
     Dosage: UNK

REACTIONS (3)
  - Drug hypersensitivity [Unknown]
  - Pharyngeal oedema [Unknown]
  - Throat tightness [Unknown]
